FAERS Safety Report 10063801 (Version 1)
Quarter: 2014Q2

REPORT INFORMATION
  Report Type: Spontaneous
  Country: DE (occurrence: DE)
  Receive Date: 20140408
  Receipt Date: 20140408
  Transmission Date: 20141212
  Serious: Yes (Other)
  Sender: FDA-Public Use
  Company Number: DE-ROCHE-1375615

PATIENT
  Age: 61 Year
  Sex: Male

DRUGS (1)
  1. CELLCEPT [Suspect]
     Indication: THROMBOTIC THROMBOCYTOPENIC PURPURA
     Route: 065
     Dates: start: 2012

REACTIONS (13)
  - Tooth extraction [Unknown]
  - Migraine with aura [Unknown]
  - Fungal infection [Unknown]
  - Decreased appetite [Unknown]
  - Dry mouth [Unknown]
  - Dizziness [Unknown]
  - Blood cholesterol increased [Unknown]
  - Fatigue [Unknown]
  - Mood swings [Unknown]
  - Alopecia [Unknown]
  - Myalgia [Unknown]
  - Muscle spasms [Unknown]
  - Off label use [Unknown]
